FAERS Safety Report 7018114-9 (Version None)
Quarter: 2010Q3

REPORT INFORMATION
  Report Type: 
  Country: None (occurrence: None)
  Receive Date: 20100922
  Receipt Date: 20100907
  Transmission Date: 20110219
  Serious: Yes (Death)
  Sender: FDA-Public Use
  Company Number: 011038

PATIENT

DRUGS (6)
  1. BUSULFEX [Suspect]
     Indication: BONE MARROW CONDITIONING REGIMEN
     Dosage: INTRAVENOUS
     Route: 042
  2. THIOTEPA [Concomitant]
  3. FLUDARABINE PHOSPHATE [Concomitant]
  4. ANTI-THYMOCYTE GLOBULIN NOS [Concomitant]
  5. CYCLOSPORINE [Concomitant]
  6. METHOTREXATE [Concomitant]

REACTIONS (2)
  - ACUTE LYMPHOCYTIC LEUKAEMIA RECURRENT [None]
  - MALIGNANT NEOPLASM PROGRESSION [None]
